FAERS Safety Report 8093310-0 (Version None)
Quarter: 2012Q1

REPORT INFORMATION
  Report Type: 
  Country: None (occurrence: None)
  Receive Date: 20120128
  Receipt Date: 20111009
  Transmission Date: 20120608
  Serious: No
  Sender: FDA-Public Use
  Company Number: US-ABBOTT-11P-163-0842695-00

PATIENT
  Sex: Male

DRUGS (15)
  1. FOLIC ACID [Concomitant]
     Indication: VITAMIN SUPPLEMENTATION
  2. XANSA [Concomitant]
     Indication: ANXIETY
     Dosage: 1-2 DAILY
  3. ASCORBIC ACID [Concomitant]
     Indication: PRODUCT USED FOR UNKNOWN INDICATION
  4. MULTI-VITAMINS [Concomitant]
     Indication: PRODUCT USED FOR UNKNOWN INDICATION
  5. FLEXTIME [Concomitant]
     Indication: ANXIOLYTIC THERAPY
  6. NORVASC [Concomitant]
     Indication: HYPERTENSION
  7. PEPCID [Concomitant]
     Indication: ABDOMINAL DISCOMFORT
  8. VITAMIN B-12 [Concomitant]
     Indication: PRODUCT USED FOR UNKNOWN INDICATION
  9. TOPROL-XL [Concomitant]
     Indication: HYPERTENSION
  10. PLAVIX [Concomitant]
     Indication: THROMBOSIS PROPHYLAXIS
  11. NIACIN [Concomitant]
     Indication: PRODUCT USED FOR UNKNOWN INDICATION
  12. HUMIRA [Suspect]
     Indication: CROHN'S DISEASE
     Dates: start: 20110705
  13. PLAVIX [Concomitant]
     Indication: CARDIOVASCULAR DISORDER
  14. VICODIN [Concomitant]
     Indication: PAIN
  15. FISH OIL [Concomitant]
     Indication: PRODUCT USED FOR UNKNOWN INDICATION

REACTIONS (4)
  - INJECTION SITE PARAESTHESIA [None]
  - RASH [None]
  - ABDOMINAL PAIN UPPER [None]
  - INJECTION SITE PRURITUS [None]
